FAERS Safety Report 10221098 (Version 1)
Quarter: 2014Q2

REPORT INFORMATION
  Report Type: Spontaneous
  Country: US (occurrence: None)
  Receive Date: 20140605
  Receipt Date: 20140605
  Transmission Date: 20141212
  Serious: Yes (Life-Threatening)
  Sender: FDA-Public Use
  Company Number: None

PATIENT
  Age: 10 Year
  Sex: Male
  Weight: 38.56 kg

DRUGS (1)
  1. SINGULAIR 5 MG [Suspect]
     Indication: MULTIPLE ALLERGIES
     Dosage: 1 TAB QD ORAL
     Route: 048
     Dates: start: 20140323, end: 20140523

REACTIONS (2)
  - Suicidal ideation [None]
  - Depression [None]
